FAERS Safety Report 12372625 (Version 1)
Quarter: 2016Q2

REPORT INFORMATION
  Report Type: Report from Study
  Country: CA (occurrence: CA)
  Receive Date: 20160516
  Receipt Date: 20160516
  Transmission Date: 20160815
  Serious: Yes (Death)
  Sender: FDA-Public Use
  Company Number: CA-009507513-1605CAN007277

PATIENT
  Age: 54 Year
  Sex: Female
  Weight: 67 kg

DRUGS (1)
  1. PEMBROLIZUMAB. [Suspect]
     Active Substance: PEMBROLIZUMAB
     Indication: METASTATIC MALIGNANT MELANOMA
     Dosage: 135 MG(2MG/KG), Q3W
     Route: 042
     Dates: start: 20160311, end: 20160511

REACTIONS (1)
  - Death [Fatal]

NARRATIVE: CASE EVENT DATE: 20160511
